FAERS Safety Report 8040134-6 (Version None)
Quarter: 2012Q1

REPORT INFORMATION
  Report Type: 
  Country: None (occurrence: None)
  Receive Date: 20120111
  Receipt Date: 20111222
  Transmission Date: 20120608
  Serious: No
  Sender: FDA-Public Use
  Company Number: US-AMGEN-USASP2011052616

PATIENT
  Sex: Female
  Weight: 78.458 kg

DRUGS (9)
  1. ENBREL [Suspect]
     Indication: RHEUMATOID ARTHRITIS
     Dosage: 50 MG, QWK
     Route: 058
     Dates: start: 20110611
  2. FLEXERIL                           /00821801/ [Concomitant]
     Dosage: 10 MG, QHS
     Route: 048
     Dates: start: 20100427
  3. PERCOCET [Concomitant]
     Dosage: 10 UNK, BID
     Dates: start: 20110401
  4. FOLIC ACID [Concomitant]
     Dosage: 1 MG, QD
     Route: 048
  5. PREDNISONE TAB [Concomitant]
     Dosage: 5 MG, QD
     Route: 048
  6. LUNESTA [Concomitant]
     Dosage: 1 MG, PRN
     Route: 048
  7. METHOTREXATE [Concomitant]
     Dosage: 0.8 UNK, FREQUENCY QS
     Route: 058
     Dates: start: 20111003
  8. VITAMINE D VOOR SENIOREN [Concomitant]
     Dosage: 50000 IU, QD
     Route: 048
  9. VOLTAREN [Concomitant]
     Dosage: 1 %, TOP UAD
     Route: 061

REACTIONS (3)
  - INJECTION SITE NODULE [None]
  - INJECTION SITE PAIN [None]
  - INJECTION SITE HAEMATOMA [None]
